FAERS Safety Report 5041972-4 (Version None)
Quarter: 2006Q2

REPORT INFORMATION
  Report Type: 
  Country: None (occurrence: None)
  Receive Date: 20060630
  Receipt Date: 20060619
  Transmission Date: 20061013
  Serious: Yes (Death)
  Sender: FDA-Public Use
  Company Number: GXKR2006GB03642

PATIENT
  Age: 40 Year
  Sex: Male
  Weight: 91 kg

DRUGS (5)
  1. FLUOXETINE [Suspect]
  2. DIAZEPAM [Suspect]
  3. TEMAZEPAM [Suspect]
  4. ZYPREXA [Suspect]
  5. ALCOHOL (ETHANOL) [Concomitant]

REACTIONS (4)
  - ANTIPSYCHOTIC DRUG LEVEL INCREASED [None]
  - BLOOD ALCOHOL INCREASED [None]
  - DEPRESSED LEVEL OF CONSCIOUSNESS [None]
  - RESPIRATORY DEPRESSION [None]
